FAERS Safety Report 5005969-2 (Version None)
Quarter: 2006Q1

REPORT INFORMATION
  Report Type: 
  Country: None (occurrence: None)
  Receive Date: 20060320
  Receipt Date: 20050201
  Transmission Date: 20060701
  Serious: Yes (Hospitalization)
  Sender: FDA-Public Use
  Company Number: 2005-02-0202

PATIENT
  Age: 34 Year
  Sex: Female
  Weight: 73.0291 kg

DRUGS (2)
  1. PEG-INTRON [Suspect]
     Dosage: 120 MCG QWK SUBCUTANEOUS
     Route: 058
     Dates: start: 20041207
  2. REBETOL [Suspect]
     Dosage: 1200 NG QD ORAL;  1000 MG QD ORAL
     Route: 048
     Dates: start: 20041207

REACTIONS (7)
  - BLOOD THYROID STIMULATING HORMONE DECREASED [None]
  - CHILLS [None]
  - HAEMOGLOBIN DECREASED [None]
  - HEADACHE [None]
  - MYALGIA [None]
  - NAUSEA [None]
  - PYREXIA [None]
